FAERS Safety Report 10575607 (Version 1)
Quarter: 2014Q4

REPORT INFORMATION
  Report Type: Spontaneous
  Country: US (occurrence: None)
  Receive Date: 20141110
  Receipt Date: 20141110
  Transmission Date: 20150529
  Serious: Yes (Other)
  Sender: FDA-Public Use
  Company Number: None

PATIENT
  Age: 56 Year
  Sex: Male
  Weight: 80.5 kg

DRUGS (2)
  1. N-ACETYLCYSTEINE [Suspect]
     Active Substance: ACETYLCYSTEINE
     Indication: ORAL PAIN
     Dates: start: 20140529, end: 20140614
  2. RADIATION [Suspect]
     Active Substance: RADIATION THERAPY
     Dosage: 6000 CGY
     Dates: start: 20140527, end: 20140711

REACTIONS (2)
  - Dysphagia [None]
  - Oral pain [None]

NARRATIVE: CASE EVENT DATE: 20140623
